FAERS Safety Report 16790821 (Version 1)
Quarter: 2019Q3

REPORT INFORMATION
  Report Type: Spontaneous
  Country: US (occurrence: US)
  Receive Date: 20190910
  Receipt Date: 20190910
  Transmission Date: 20191005
  Serious: Yes (Other)
  Sender: FDA-Public Use
  Company Number: US-PFIZER INC-2019384290

PATIENT
  Age: 65 Year
  Sex: Male
  Weight: 80.73 kg

DRUGS (1)
  1. RELPAX [Suspect]
     Active Substance: ELETRIPTAN HYDROBROMIDE
     Indication: MIGRAINE
     Dosage: 40 MG, UNK

REACTIONS (9)
  - Recalled product administered [Unknown]
  - Respiratory tract infection [Unknown]
  - Toothache [Unknown]
  - Faeces discoloured [Unknown]
  - Insomnia [Unknown]
  - Pyrexia [Unknown]
  - Product contamination microbial [Unknown]
  - Pain [Unknown]
  - Sinusitis [Unknown]
